FAERS Safety Report 25605153 (Version 1)
Quarter: 2025Q3

REPORT INFORMATION
  Report Type: Spontaneous
  Country: EU (occurrence: EU)
  Receive Date: 20250725
  Receipt Date: 20250725
  Transmission Date: 20251021
  Serious: Yes (Life-Threatening)
  Sender: TEVA
  Company Number: None

PATIENT
  Age: 42 Year
  Sex: Male
  Weight: 105 kg

DRUGS (1)
  1. SIMVASTATIN [Suspect]
     Active Substance: SIMVASTATIN
     Indication: Hypercholesterolaemia
     Dosage: SIMVASTATIN ACTAVIS
     Route: 065
     Dates: start: 20230531, end: 20250628

REACTIONS (7)
  - Suicidal ideation [Recovered/Resolved]
  - Anger [Recovered/Resolved]
  - Irritability [Recovered/Resolved]
  - Depression [Recovered/Resolved]
  - Personality change [Recovered/Resolved]
  - Brain fog [Recovered/Resolved]
  - Aggression [Recovered/Resolved]

NARRATIVE: CASE EVENT DATE: 20230601
